FAERS Safety Report 6908850-4 (Version None)
Quarter: 2010Q3

REPORT INFORMATION
  Report Type: 
  Country: None (occurrence: None)
  Receive Date: 20100805
  Receipt Date: 20100728
  Transmission Date: 20110219
  Serious: Yes (Disabling)
  Sender: FDA-Public Use
  Company Number: B0667379A

PATIENT
  Age: 75 Year
  Sex: Male
  Weight: 62 kg

DRUGS (9)
  1. DUTASTERIDE [Suspect]
     Indication: BENIGN PROSTATIC HYPERPLASIA
     Dosage: 500MCG PER DAY
     Route: 048
     Dates: start: 20091101
  2. TAMSULOSIN HCL [Suspect]
     Dosage: 400MCG PER DAY
     Route: 048
  3. ATORVASTATIN [Concomitant]
     Dosage: 80MG PER DAY
     Route: 048
     Dates: start: 20080301
  4. ZOPICLONE [Concomitant]
     Indication: INSOMNIA
     Route: 048
     Dates: start: 20100601
  5. MIRTAZAPINE [Concomitant]
     Indication: MAJOR DEPRESSION
     Route: 048
     Dates: start: 20100201, end: 20100501
  6. BISOPROLOL [Concomitant]
  7. ASPIRIN [Concomitant]
  8. PERINDOPRIL [Concomitant]
  9. CLOPIDOGREL [Concomitant]

REACTIONS (1)
  - MAJOR DEPRESSION [None]
